FAERS Safety Report 7720425-6 (Version None)
Quarter: 2011Q3

REPORT INFORMATION
  Report Type: 
  Country: None (occurrence: None)
  Receive Date: 20110825
  Receipt Date: 20110812
  Transmission Date: 20111222
  Serious: Yes (Hospitalization, Other)
  Sender: FDA-Public Use
  Company Number: EU-2011-10123

PATIENT
  Sex: Male
  Weight: 76 kg

DRUGS (5)
  1. PLAVIX [Concomitant]
  2. PLETAL [Suspect]
     Indication: CARDIAC OPERATION
     Dosage: 100 MG MILLIGRAM(S), ORAL
     Route: 048
     Dates: start: 20110606, end: 20110625
  3. AMLODIPIN (AMLODIPIN) [Concomitant]
  4. RAMIPRIL [Concomitant]
  5. SOTALOL HCL [Concomitant]

REACTIONS (17)
  - EYE PAIN [None]
  - MITRAL VALVE INCOMPETENCE [None]
  - ABDOMINAL PAIN UPPER [None]
  - DIARRHOEA [None]
  - ARRHYTHMIA [None]
  - RETINAL DETACHMENT [None]
  - ARTHRALGIA [None]
  - ASTHENIA [None]
  - PYREXIA [None]
  - ERYTHEMA [None]
  - PARANASAL SINUS DISCOMFORT [None]
  - CHILLS [None]
  - SLEEP DISORDER [None]
  - JOINT SWELLING [None]
  - AORTIC VALVE INCOMPETENCE [None]
  - HEADACHE [None]
  - BODY TEMPERATURE INCREASED [None]
